FAERS Safety Report 20748325 (Version 1)
Quarter: 2022Q2

REPORT INFORMATION
  Report Type: Spontaneous
  Country: GR (occurrence: GR)
  Receive Date: 20220426
  Receipt Date: 20220426
  Transmission Date: 20220720
  Serious: Yes (Other)
  Sender: FDA-Public Use
  Company Number: GR-SA-SAC20220411001437

PATIENT
  Age: 55 Year
  Sex: Female

DRUGS (1)
  1. IRBESARTAN [Suspect]
     Active Substance: IRBESARTAN
     Indication: Product used for unknown indication
     Dosage: UNK

REACTIONS (4)
  - Parkinson^s disease [Unknown]
  - Blood pressure abnormal [Unknown]
  - Blood pressure increased [Recovered/Resolved]
  - Drug ineffective [Unknown]
